FAERS Safety Report 7998096-3 (Version None)
Quarter: 2011Q4

REPORT INFORMATION
  Report Type: 
  Country: None (occurrence: None)
  Receive Date: 20111221
  Receipt Date: 20110124
  Transmission Date: 20120403
  Serious: No
  Sender: FDA-Public Use
  Company Number: US-GLAXOSMITHKLINE-A0908622A

PATIENT
  Age: 60 Year
  Sex: Male

DRUGS (13)
  1. CARVEDILOL [Concomitant]
  2. GLYBURIDE [Concomitant]
  3. METFORMIN HCL [Concomitant]
  4. JANUVIA [Concomitant]
  5. LOVAZA [Suspect]
     Indication: BLOOD TRIGLYCERIDES INCREASED
     Dosage: 2CAPL TWICE PER DAY
     Route: 048
     Dates: start: 20080101
  6. TRILIPIX [Concomitant]
  7. FUROSEMIDE [Concomitant]
  8. AMBRIL [Concomitant]
  9. SIMVASTATIN [Concomitant]
  10. MENEPAROL [Concomitant]
  11. NEXIUM [Concomitant]
  12. DIGOXIN [Concomitant]
  13. VITAMIN C [Concomitant]

REACTIONS (2)
  - MEDICATION RESIDUE [None]
  - PRODUCT QUALITY ISSUE [None]
